FAERS Safety Report 5662603-6 (Version None)
Quarter: 2008Q1

REPORT INFORMATION
  Report Type: 
  Country: None (occurrence: None)
  Receive Date: 20080310
  Receipt Date: 20080310
  Transmission Date: 20080703
  Serious: No
  Sender: FDA-Public Use
  Company Number: None

PATIENT
  Age: 50 Year
  Sex: Female
  Weight: 55.3388 kg

DRUGS (2)
  1. LEVAQUIN [Suspect]
     Indication: ARTHROPOD BITE
     Dosage: ONE TAB  ONCE A DAY PO
     Route: 048
     Dates: start: 20040321, end: 20040325
  2. TEQUIN [Suspect]
     Indication: ARTHROPOD BITE
     Dosage: ONE TAB TWICE A DAY PO
     Route: 048
     Dates: start: 20040326, end: 20040405

REACTIONS (7)
  - ARTHRALGIA [None]
  - CONFUSIONAL STATE [None]
  - DIZZINESS [None]
  - FEELING ABNORMAL [None]
  - MYALGIA [None]
  - NIGHTMARE [None]
  - PLATELET COUNT DECREASED [None]
